FAERS Safety Report 15406984 (Version 1)
Quarter: 2018Q3

REPORT INFORMATION
  Report Type: Spontaneous
  Country: US (occurrence: US)
  Receive Date: 20180919
  Receipt Date: 20180919
  Transmission Date: 20181010
  Serious: Yes (Other)
  Sender: FDA-Public Use
  Company Number: None

PATIENT
  Age: 77 Year
  Sex: Female
  Weight: 67.95 kg

DRUGS (12)
  1. VITAMIN D [Concomitant]
     Active Substance: CHOLECALCIFEROL
  2. NITROGLYCERIN. [Concomitant]
     Active Substance: NITROGLYCERIN
  3. XARELTO [Concomitant]
     Active Substance: RIVAROXABAN
  4. AMLODIPINE BESYLATE AND BENAZEPRIL HYDROCHLORIDE [Concomitant]
     Active Substance: AMLODIPINE BESYLATE\BENAZEPRIL HYDROCHLORIDE
  5. LISINOPRIL. [Concomitant]
     Active Substance: LISINOPRIL
  6. CAPECITABINE. [Suspect]
     Active Substance: CAPECITABINE
     Indication: BREAST CANCER
     Route: 048
     Dates: start: 20180816
  7. ISOSORBIDE DINITRATE. [Concomitant]
     Active Substance: ISOSORBIDE DINITRATE
  8. METOPROLOL. [Concomitant]
     Active Substance: METOPROLOL
  9. PRAVASTATIN. [Concomitant]
     Active Substance: PRAVASTATIN
  10. GLIPIZIDE. [Concomitant]
     Active Substance: GLIPIZIDE
  11. METFORMIN [Concomitant]
     Active Substance: METFORMIN HYDROCHLORIDE
  12. ASPIRIN. [Concomitant]
     Active Substance: ASPIRIN

REACTIONS (2)
  - Sensation of foreign body [None]
  - Skin discolouration [None]

NARRATIVE: CASE EVENT DATE: 20180919
